FAERS Safety Report 7251178-6 (Version None)
Quarter: 2011Q1

REPORT INFORMATION
  Report Type: 
  Country: None (occurrence: None)
  Receive Date: 20110128
  Receipt Date: 20110120
  Transmission Date: 20110831
  Serious: Yes (Other)
  Sender: FDA-Public Use
  Company Number: US-JNJCH-2011000509

PATIENT
  Age: 38 Year
  Sex: Female
  Weight: 82.6 kg

DRUGS (1)
  1. ROLAIDS [Suspect]
     Indication: DYSPEPSIA
     Dosage: TEXT:TWO TABLETS, FREQUENCY ^VARIES^
     Route: 048

REACTIONS (7)
  - TOOTHACHE [None]
  - CONSTIPATION [None]
  - ABDOMINAL PAIN UPPER [None]
  - TOOTH FRACTURE [None]
  - TOOTH DISORDER [None]
  - PRODUCT QUALITY ISSUE [None]
  - ABDOMINAL DISTENSION [None]
